FAERS Safety Report 8830339 (Version 3)
Quarter: 2013Q1

REPORT INFORMATION
  Report Type: Spontaneous
  Country: US (occurrence: None)
  Receive Date: 20121004
  Receipt Date: 20121220
  Transmission Date: 20140127
  Serious: Yes (Death, Hospitalization)
  Sender: FDA-Public Use
  Company Number: 2012-517

PATIENT
  Age: 84 Year
  Sex: Female

DRUGS (4)
  1. PRIALT [Suspect]
     Indication: PAIN
     Route: 037
     Dates: end: 20120622
  2. PRIALT [Suspect]
     Indication: POST LAMINECTOMY SYNDROME
     Route: 037
     Dates: end: 20120622
  3. DILAUDID [Suspect]
     Route: 037
     Dates: end: 20120622
  4. OXYGEN (OXYGEN) [Concomitant]

REACTIONS (3)
  - Chronic obstructive pulmonary disease [None]
  - Pneumonia [None]
  - Disease complication [None]
